FAERS Safety Report 19122475 (Version 1)
Quarter: 2021Q2

REPORT INFORMATION
  Report Type: Spontaneous
  Country: US (occurrence: US)
  Receive Date: 20210412
  Receipt Date: 20210412
  Transmission Date: 20210717
  Serious: No
  Sender: FDA-Public Use
  Company Number: US-ALLERGAN-2100378US

PATIENT
  Sex: Female

DRUGS (2)
  1. MARIJUANA [Concomitant]
     Active Substance: CANNABIS SATIVA SUBSP. INDICA TOP
  2. UBRELVY [Suspect]
     Active Substance: UBROGEPANT
     Indication: MIGRAINE

REACTIONS (1)
  - Product administration error [Unknown]
